FAERS Safety Report 7218637-3 (Version None)
Quarter: 2011Q1

REPORT INFORMATION
  Report Type: 
  Country: None (occurrence: None)
  Receive Date: 20110110
  Receipt Date: 20110105
  Transmission Date: 20110831
  Serious: Yes (Hospitalization)
  Sender: FDA-Public Use
  Company Number: CA-ABBOTT-10P-028-0690952-00

PATIENT
  Sex: Male
  Weight: 110.32 kg

DRUGS (3)
  1. HUMIRA [Suspect]
     Indication: PSORIASIS
     Route: 058
     Dates: start: 20090101
  2. VENTOLIN [Concomitant]
     Indication: PRODUCT USED FOR UNKNOWN INDICATION
     Route: 055
  3. OXEZE [Concomitant]
     Indication: PRODUCT USED FOR UNKNOWN INDICATION
     Route: 055

REACTIONS (10)
  - ASTHMA [None]
  - SINUS HEADACHE [None]
  - COUGH [None]
  - BRONCHITIS [None]
  - PROCTALGIA [None]
  - DYSPNOEA [None]
  - LOBAR PNEUMONIA [None]
  - DIARRHOEA [None]
  - RESPIRATORY DISTRESS [None]
  - NASOPHARYNGITIS [None]
